FAERS Safety Report 10084686 (Version 1)
Quarter: 2014Q2

REPORT INFORMATION
  Report Type: Spontaneous
  Country: US (occurrence: US)
  Receive Date: 20140417
  Receipt Date: 20140417
  Transmission Date: 20141212
  Serious: Yes (Other)
  Sender: FDA-Public Use
  Company Number: US-GLAXOSMITHKLINE-A1068878A

PATIENT
  Sex: Male

DRUGS (6)
  1. ADVAIR [Suspect]
     Indication: ASTHMA
     Dosage: 1PUFF TWICE PER DAY
     Route: 055
  2. METHOTREXATE [Concomitant]
  3. PLAQUENIL [Concomitant]
  4. VITAMINS [Concomitant]
  5. FOLIC ACID [Concomitant]
  6. PROPANOLOL [Concomitant]

REACTIONS (11)
  - Rheumatoid arthritis [Unknown]
  - Gait disturbance [Recovering/Resolving]
  - Pain [Recovering/Resolving]
  - Musculoskeletal pain [Recovered/Resolved]
  - Arthralgia [Not Recovered/Not Resolved]
  - Pain in extremity [Unknown]
  - Asthma [Unknown]
  - Gait disturbance [Unknown]
  - Fall [Unknown]
  - Ankle fracture [Unknown]
  - Bone pain [Unknown]
